FAERS Safety Report 19423756 (Version 2)
Quarter: 2021Q2

REPORT INFORMATION
  Report Type: Spontaneous
  Country: US (occurrence: US)
  Receive Date: 20210616
  Receipt Date: 20210630
  Transmission Date: 20210717
  Serious: No
  Sender: FDA-Public Use
  Company Number: US-PFIZER INC-2020492058

PATIENT
  Age: 57 Year
  Sex: Male

DRUGS (3)
  1. DEPO?ESTRADIOL [Suspect]
     Active Substance: ESTRADIOL CYPIONATE
     Indication: GENDER DYSPHORIA
     Dosage: UNK
     Dates: start: 201907
  2. DEPO?ESTRADIOL [Suspect]
     Active Substance: ESTRADIOL CYPIONATE
     Indication: HORMONE THERAPY
     Dosage: WEEKLY (0.8 A WEEK)
  3. DEPO?ESTRADIOL [Suspect]
     Active Substance: ESTRADIOL CYPIONATE
     Dosage: UNK (STRENGTH: 0.8 ML (4MG))

REACTIONS (3)
  - Product use in unapproved indication [Unknown]
  - Memory impairment [Unknown]
  - Product prescribing error [Unknown]

NARRATIVE: CASE EVENT DATE: 201907
